FAERS Safety Report 5531543-5 (Version None)
Quarter: 2007Q4

REPORT INFORMATION
  Report Type: 
  Country: None (occurrence: None)
  Receive Date: 20071203
  Receipt Date: 20071123
  Transmission Date: 20080405
  Serious: Yes (Other)
  Sender: FDA-Public Use
  Company Number: PHBS2007AT18690

PATIENT
  Age: 28 Year
  Sex: Female
  Weight: 45 kg

DRUGS (5)
  1. EXJADE [Suspect]
     Indication: CONGENITAL APLASTIC ANAEMIA
     Dosage: 875 MG/D
     Route: 065
     Dates: start: 20060208, end: 20071016
  2. FEMOSTON [Concomitant]
     Indication: AMENORRHOEA
     Dosage: 1 DF, QD
     Route: 048
  3. THYREX [Concomitant]
     Indication: HYPOTHYROIDISM
     Dosage: 0.05 MG, QD
     Route: 048
  4. GUTALAX [Concomitant]
     Dosage: UNK, PRN
  5. SUGAR-FREE DIET [Concomitant]

REACTIONS (11)
  - ABDOMINAL PAIN [None]
  - ABDOMINAL PAIN UPPER [None]
  - ALANINE AMINOTRANSFERASE INCREASED [None]
  - ASPARTATE AMINOTRANSFERASE INCREASED [None]
  - BILE DUCT OBSTRUCTION [None]
  - BLOOD ALKALINE PHOSPHATASE INCREASED [None]
  - BLOOD LACTATE DEHYDROGENASE INCREASED [None]
  - CONSTIPATION [None]
  - DEAFNESS BILATERAL [None]
  - GAMMA-GLUTAMYLTRANSFERASE INCREASED [None]
  - TRANSAMINASES INCREASED [None]
